FAERS Safety Report 9589558 (Version 1)
Quarter: 2013Q4

REPORT INFORMATION
  Report Type: Spontaneous
  Country: US (occurrence: US)
  Receive Date: 20131003
  Receipt Date: 20131003
  Transmission Date: 20140711
  Serious: No
  Sender: FDA-Public Use
  Company Number: US-AMGEN-USASP2012071271

PATIENT
  Age: 34 Year
  Sex: Male
  Weight: 136.5 kg

DRUGS (3)
  1. ENBREL [Suspect]
     Indication: PRODUCT USED FOR UNKNOWN INDICATION
     Dosage: 50 MG, QWK
     Route: 058
  2. MOBIC [Concomitant]
     Dosage: 15 MG, UNK
  3. TESTOSTERONE [Concomitant]
     Dosage: 100 MG/ML, UNK

REACTIONS (2)
  - Nail bed disorder [Unknown]
  - Pain [Unknown]
